FAERS Safety Report 7127707-X (Version None)
Quarter: 2010Q4

REPORT INFORMATION
  Report Type: 
  Country: None (occurrence: None)
  Receive Date: 20101130
  Receipt Date: 20101116
  Transmission Date: 20110411
  Serious: No
  Sender: FDA-Public Use
  Company Number: US-BIOGENIDEC-2010BI034975

PATIENT
  Age: 48 Year
  Sex: Female

DRUGS (1)
  1. TYSABRI [Suspect]
     Indication: MULTIPLE SCLEROSIS
     Route: 042
     Dates: start: 20090909

REACTIONS (7)
  - INSOMNIA [None]
  - NASOPHARYNGITIS [None]
  - POLLAKIURIA [None]
  - PYREXIA [None]
  - RHINORRHOEA [None]
  - SINUS HEADACHE [None]
  - URINARY TRACT INFECTION [None]
